FAERS Safety Report 7543911-0 (Version None)
Quarter: 2011Q2

REPORT INFORMATION
  Report Type: 
  Country: None (occurrence: None)
  Receive Date: 20110613
  Receipt Date: 20110606
  Transmission Date: 20111010
  Serious: Yes (Death)
  Sender: FDA-Public Use
  Company Number: JP-CELGENEUS-087-50794-11060951

PATIENT
  Age: 73 Year
  Sex: Male

DRUGS (2)
  1. NEUPOGEN [Concomitant]
     Route: 065
  2. VIDAZA [Suspect]
     Dosage: 120 MILLIGRAM
     Route: 058
     Dates: start: 20110413, end: 20110419

REACTIONS (1)
  - DEATH [None]
